FAERS Safety Report 6860386-5 (Version None)
Quarter: 2010Q3

REPORT INFORMATION
  Report Type: 
  Country: None (occurrence: None)
  Receive Date: 20100720
  Receipt Date: 20100709
  Transmission Date: 20110219
  Serious: Yes (Other)
  Sender: FDA-Public Use
  Company Number: US-ROCHE-701016

PATIENT
  Sex: Female

DRUGS (3)
  1. PEGASYS [Suspect]
     Indication: HEPATITIS C
     Dosage: FORM: PFS
     Route: 065
     Dates: start: 20100203, end: 20100707
  2. REBETOL [Suspect]
     Dosage: DIVIDED DOSES
     Route: 065
     Dates: start: 20100203
  3. RIBAVIRIN [Suspect]
     Indication: HEPATITIS C
     Dosage: 400 MG IN MORNING AND 200 MG IN EVENING
     Route: 065

REACTIONS (18)
  - ALOPECIA [None]
  - BLOOD DISORDER [None]
  - BONE PAIN [None]
  - COUGH [None]
  - DEPRESSION [None]
  - DIARRHOEA [None]
  - DRUG INTOLERANCE [None]
  - DYSPNOEA EXERTIONAL [None]
  - FATIGUE [None]
  - HEADACHE [None]
  - INFLUENZA LIKE ILLNESS [None]
  - MIDDLE INSOMNIA [None]
  - NAUSEA [None]
  - PAIN [None]
  - PARAESTHESIA [None]
  - PLATELET COUNT DECREASED [None]
  - RED BLOOD CELL COUNT DECREASED [None]
  - WHITE BLOOD CELL COUNT DECREASED [None]
